FAERS Safety Report 7483552-7 (Version None)
Quarter: 2011Q2

REPORT INFORMATION
  Report Type: 
  Country: None (occurrence: None)
  Receive Date: 20110517
  Receipt Date: 20110509
  Transmission Date: 20111010
  Serious: No
  Sender: FDA-Public Use
  Company Number: US-PFIZER INC-2011099333

PATIENT
  Sex: Male
  Weight: 97.506 kg

DRUGS (4)
  1. VITAMIN B-12 [Concomitant]
     Dosage: UNK
  2. TESTOSTERONE [Concomitant]
     Dosage: UNK
  3. RELISTOR [Suspect]
     Indication: IRRITABLE BOWEL SYNDROME
     Dosage: UNK, DAILY
     Route: 030
     Dates: start: 20100101
  4. MIRALAX [Concomitant]
     Dosage: UNK, 2X/DAY

REACTIONS (1)
  - NIGHT SWEATS [None]
